FAERS Safety Report 8838567 (Version 1)
Quarter: 2012Q4

REPORT INFORMATION
  Report Type: 
  Country: JP (occurrence: NZ)
  Receive Date: 20121012
  Receipt Date: 20121012
  Transmission Date: 20130627
  Serious: Yes (Other)
  Sender: FDA-Public Use
  Company Number: JP-ASTRAZENECA-2012SE77488

PATIENT
  Weight: 3.3 kg

DRUGS (1)
  1. CANDESARTAN CILEXETIL [Suspect]
     Indication: HYPERTENSION
     Route: 064

REACTIONS (6)
  - Foetal exposure during pregnancy [Unknown]
  - Respiratory distress [Recovered/Resolved]
  - Heart disease congenital [Unknown]
  - Hypertension [Recovered/Resolved]
  - Renal vessel congenital anomaly [Unknown]
  - Pericardial effusion [Recovered/Resolved]
